FAERS Safety Report 5605667-8 (Version None)
Quarter: 2008Q2

REPORT INFORMATION
  Report Type: 
  Country: None (occurrence: None)
  Receive Date: 20080123
  Receipt Date: 20080110
  Transmission Date: 20081010
  Serious: Yes (Hospitalization)
  Sender: FDA-Public Use
  Company Number: DSJ-2007-09708

PATIENT
  Age: 66 Year
  Sex: Male
  Weight: 74 kg

DRUGS (5)
  1. OLMESARTAN MEDOXOMIL [Suspect]
     Indication: HYPERTENSION
     Dosage: 40 MG (20 MG, 2 IN 1 D), PER ORAL
     Route: 048
     Dates: start: 20070322, end: 20071118
  2. LIVALO [Suspect]
     Indication: HYPERLIPIDAEMIA
     Dosage: 2 MG (2 MG, 1 IN 1 D), PER ORAL
     Route: 048
     Dates: start: 20071022, end: 20071118
  3. CALBLOCK (AZELNIDIPINE) [Concomitant]
  4. CARVEDILOL [Concomitant]
  5. TENORMIN [Concomitant]

REACTIONS (3)
  - HYPERKALAEMIA [None]
  - HYPERLIPIDAEMIA [None]
  - RENAL IMPAIRMENT [None]
